FAERS Safety Report 5122886-8 (Version None)
Quarter: 2006Q4

REPORT INFORMATION
  Report Type: 
  Country: None (occurrence: None)
  Receive Date: 20061005
  Receipt Date: 20060922
  Transmission Date: 20070319
  Serious: Yes (Other)
  Sender: FDA-Public Use
  Company Number: 2006115996

PATIENT
  Sex: Female
  Weight: 86.1834 kg

DRUGS (7)
  1. LYRICA [Suspect]
     Indication: NEUROPATHY
     Dosage: 200 MG (100 MG, 2 IN 1 D)
     Dates: start: 20060727, end: 20060902
  2. POTASSIUM (POTASSIUM) [Concomitant]
  3. CAPSAICIN (CAPSAICIN) [Concomitant]
  4. MULTIVITAMIN [Concomitant]
  5. ZOFRAN [Concomitant]
  6. GEMCITABINE [Concomitant]
  7. CISPLATIN [Concomitant]

REACTIONS (8)
  - ABASIA [None]
  - DRUG INEFFECTIVE [None]
  - EXOSTOSIS [None]
  - IMPAIRED DRIVING ABILITY [None]
  - OEDEMA PERIPHERAL [None]
  - PAIN [None]
  - SENSATION OF PRESSURE [None]
  - WEIGHT INCREASED [None]
